FAERS Safety Report 7572279-9 (Version None)
Quarter: 2011Q2

REPORT INFORMATION
  Report Type: 
  Country: None (occurrence: None)
  Receive Date: 20110624
  Receipt Date: 20110615
  Transmission Date: 20111010
  Serious: Yes (Other)
  Sender: FDA-Public Use
  Company Number: PHHY2011BR51234

PATIENT
  Sex: Female

DRUGS (1)
  1. LESCOL [Suspect]
     Indication: BLOOD CHOLESTEROL
     Dosage: 80 MG, UNK

REACTIONS (3)
  - MALAISE [None]
  - VOMITING [None]
  - GASTRITIS [None]
